FAERS Safety Report 25489545 (Version 2)
Quarter: 2025Q3

REPORT INFORMATION
  Report Type: Report from Study
  Country: CA (occurrence: CA)
  Receive Date: 20250627
  Receipt Date: 20250711
  Transmission Date: 20251021
  Serious: Yes (Other)
  Sender: TAKEDA
  Company Number: CA-TAKEDA-2025TUS056002

PATIENT
  Age: 56 Year
  Sex: Male

DRUGS (16)
  1. HUMAN IMMUNOGLOBULIN G [Suspect]
     Active Substance: HUMAN IMMUNOGLOBULIN G
     Indication: Primary immunodeficiency syndrome
     Dosage: 7 GRAM, 1/WEEK
     Dates: start: 20250614
  2. HUMAN IMMUNOGLOBULIN G [Suspect]
     Active Substance: HUMAN IMMUNOGLOBULIN G
     Indication: Multiple sclerosis
     Dosage: 7 GRAM, 1/WEEK
  3. HUMAN IMMUNOGLOBULIN G [Suspect]
     Active Substance: HUMAN IMMUNOGLOBULIN G
     Dosage: 7 GRAM, 1/WEEK
  4. HUMAN IMMUNOGLOBULIN G [Suspect]
     Active Substance: HUMAN IMMUNOGLOBULIN G
     Dosage: 7 GRAM, 1/WEEK
  5. SYMBICORT [Concomitant]
     Active Substance: BUDESONIDE\FORMOTEROL FUMARATE DIHYDRATE
  6. NASONEX [Concomitant]
     Active Substance: MOMETASONE FUROATE
  7. AZITHROMYCIN [Concomitant]
     Active Substance: AZITHROMYCIN
     Dosage: UNK UNK, QD
  8. BUDESONIDE [Concomitant]
     Active Substance: BUDESONIDE
  9. TAMSULOSIN [Concomitant]
     Active Substance: TAMSULOSIN
  10. CETIRIZINE [Concomitant]
     Active Substance: CETIRIZINE HYDROCHLORIDE
  11. ROSUVASTATIN [Concomitant]
     Active Substance: ROSUVASTATIN
  12. MONTELUKAST [Concomitant]
     Active Substance: MONTELUKAST
  13. DUPIXENT [Concomitant]
     Active Substance: DUPILUMAB
  14. KESIMPTA [Concomitant]
     Active Substance: OFATUMUMAB
  15. VITAMIN D NOS [Concomitant]
     Active Substance: CHOLECALCIFEROL\ERGOCALCIFEROL
  16. VITAMIN B [Concomitant]
     Active Substance: VITAMIN B

REACTIONS (5)
  - Syncope [Recovered/Resolved]
  - Groin pain [Unknown]
  - Infusion site pruritus [Recovered/Resolved]
  - Diarrhoea [Unknown]
  - Headache [Unknown]

NARRATIVE: CASE EVENT DATE: 20250618
